FAERS Safety Report 8336702-4 (Version None)
Quarter: 2012Q2

REPORT INFORMATION
  Report Type: 
  Country: None (occurrence: None)
  Receive Date: 20120504
  Receipt Date: 20120426
  Transmission Date: 20120825
  Serious: Yes (Hospitalization)
  Sender: FDA-Public Use
  Company Number: JP-BAYER-2012-029890

PATIENT
  Age: 74 Year
  Sex: Male
  Weight: 57.596 kg

DRUGS (3)
  1. LIVACT [Concomitant]
     Indication: HYPOPROTEINAEMIA
     Dosage: DAILY DOSE 12.45 G
     Route: 048
     Dates: start: 20120221
  2. PYDOXAL [Concomitant]
     Indication: PROPHYLAXIS
     Dosage: DAILY DOSE 60 MG
     Route: 048
     Dates: start: 20120221
  3. NEXAVAR [Suspect]
     Indication: HEPATIC NEOPLASM MALIGNANT
     Dosage: DAILY DOSE 400 MG
     Route: 048
     Dates: start: 20120221, end: 20120327

REACTIONS (1)
  - LIVER DISORDER [None]
